FAERS Safety Report 6474003-X (Version None)
Quarter: 2009Q4

REPORT INFORMATION
  Report Type: 
  Country: None (occurrence: None)
  Receive Date: 20091123
  Receipt Date: 20091006
  Transmission Date: 20100525
  Serious: No
  Sender: FDA-Public Use
  Company Number: 8053011

PATIENT
  Age: 37 Year
  Sex: Female
  Weight: 86.1 kg

DRUGS (14)
  1. CIMZIA [Suspect]
     Indication: CROHN'S DISEASE
     Dosage: 400 MG SC
     Route: 058
     Dates: start: 20090209
  2. BENTYL [Concomitant]
  3. DARVON [Concomitant]
  4. FLAGYL [Concomitant]
  5. COLAZAL [Concomitant]
  6. PREDNISONE [Concomitant]
  7. PREDNISONE [Concomitant]
  8. PREDNISONE [Concomitant]
  9. XANAX [Concomitant]
  10. AMBIEN [Concomitant]
  11. NEXIUM [Concomitant]
  12. ZOVIA 1/35E-21 [Concomitant]
  13. VICODIN [Concomitant]
  14. SKELAXIN [Concomitant]

REACTIONS (5)
  - ABDOMINAL PAIN UPPER [None]
  - DENTAL CARIES [None]
  - DRY MOUTH [None]
  - INJECTION SITE IRRITATION [None]
  - INJECTION SITE REACTION [None]
